FAERS Safety Report 11776436 (Version 8)
Quarter: 2020Q3

REPORT INFORMATION
  Report Type: Report from Study
  Country: US (occurrence: US)
  Receive Date: 20151125
  Receipt Date: 20181115
  Transmission Date: 20201105
  Serious: Yes (Hospitalization)
  Sender: FDA-Public Use
  Company Number: US-ROCHE-1662875

PATIENT
  Age: 69 Year
  Sex: Female
  Weight: 53.3 kg

DRUGS (13)
  1. TRASTUZUMAB EMTANSINE [Suspect]
     Active Substance: ADO-TRASTUZUMAB EMTANSINE
     Dosage: SECOND INFUSION AS PER PROTOCOL SCHEDULE
     Route: 042
     Dates: start: 20151113
  2. TASELISIB. [Suspect]
     Active Substance: TASELISIB
     Dosage: HELD ON 16/NOV/2015
     Route: 048
     Dates: start: 20150821, end: 20151116
  3. TASELISIB. [Suspect]
     Active Substance: TASELISIB
     Dosage: DOSE REDUCED
     Route: 048
     Dates: start: 20151119
  4. IMODIUM A?D [Concomitant]
     Active Substance: LOPERAMIDE HYDROCHLORIDE
     Indication: DIARRHOEA
     Dosage: PRN
     Route: 048
  5. TRASTUZUMAB EMTANSINE [Suspect]
     Active Substance: ADO-TRASTUZUMAB EMTANSINE
     Route: 042
     Dates: start: 20150821
  6. NALTREXONE [Concomitant]
     Active Substance: NALTREXONE
     Dosage: 50 MG TABLET
     Route: 048
  7. ULTRAM [Concomitant]
     Active Substance: TRAMADOL HYDROCHLORIDE
     Dosage: PRN
     Route: 048
  8. THYROID, PORK [Concomitant]
     Route: 048
  9. DELTASONE [Concomitant]
     Active Substance: PREDNISONE
     Dosage: 2 TABLETS: 2 HOURS AND 12 HOURS PRIOR TO SCAN
     Route: 048
  10. ATIVAN [Concomitant]
     Active Substance: LORAZEPAM
     Indication: ANXIETY
     Dosage: PRN
     Route: 048
  11. DELTASONE [Concomitant]
     Active Substance: PREDNISONE
     Dosage: 13, 7 AND 1 HOUR PRIOR TO CT SCANS
     Route: 065
  12. PEPCID (UNITED STATES) [Concomitant]
     Route: 048
  13. LOMOTIL [Concomitant]
     Active Substance: ATROPINE SULFATE\DIPHENOXYLATE HYDROCHLORIDE
     Indication: DIARRHOEA
     Dosage: 2.5?0.025 MG, PRN
     Route: 048

REACTIONS (3)
  - Diarrhoea [Recovered/Resolved]
  - Pneumocystis jirovecii pneumonia [Recovered/Resolved]
  - Fatigue [Recovered/Resolved]

NARRATIVE: CASE EVENT DATE: 20151114
